FAERS Safety Report 7293736-9 (Version None)
Quarter: 2011Q1

REPORT INFORMATION
  Report Type: 
  Country: None (occurrence: None)
  Receive Date: 20110215
  Receipt Date: 20110203
  Transmission Date: 20110831
  Serious: Yes (Other)
  Sender: FDA-Public Use
  Company Number: US-ELI_LILLY_AND_COMPANY-US201102001256

PATIENT
  Age: 54 Year
  Sex: Female
  Weight: 63.5 kg

DRUGS (6)
  1. CYMBALTA [Suspect]
     Indication: DEPRESSION
     Dosage: 60 MG, UNK
     Route: 048
  2. LYRICA [Concomitant]
     Dosage: 200 MG, DAILY (1/D)
  3. CYMBALTA [Suspect]
     Dosage: UNK, UNKNOWN
  4. LYRICA [Concomitant]
     Indication: FIBROMYALGIA
     Dosage: 50 MG, DAILY (1/D)
     Dates: start: 20060101
  5. LYRICA [Concomitant]
     Dosage: 25 MG, DAILY (1/D)
     Route: 048
  6. LYRICA [Concomitant]
     Dosage: 150 MG, UNK

REACTIONS (4)
  - DRUG INEFFECTIVE [None]
  - VOMITING [None]
  - BREAST CANCER [None]
  - HYPOAESTHESIA [None]
